FAERS Safety Report 6350675-5 (Version None)
Quarter: 2009Q3

REPORT INFORMATION
  Report Type: 
  Country: None (occurrence: None)
  Receive Date: 20090911
  Receipt Date: 20090622
  Transmission Date: 20100115
  Serious: No
  Sender: FDA-Public Use
  Company Number: US-ABBOTT-07P-163-0366453-00

PATIENT
  Sex: Female
  Weight: 96 kg

DRUGS (5)
  1. HUMIRA [Suspect]
     Indication: ANKYLOSING SPONDYLITIS
     Route: 058
     Dates: start: 20070413
  2. HUMIRA [Suspect]
     Indication: SJOGREN'S SYNDROME
  3. PULMICORT [Concomitant]
     Indication: ASTHMA
     Route: 055
     Dates: start: 20020101
  4. SERVOVENT INHALER [Concomitant]
     Indication: ASTHMA
     Route: 055
     Dates: start: 20020101
  5. SALBUTAMOL [Concomitant]
     Indication: ASTHMA
     Route: 055
     Dates: start: 20010101

REACTIONS (3)
  - ACCIDENTAL NEEDLE STICK [None]
  - CHILLS [None]
  - HEADACHE [None]
